FAERS Safety Report 5374888-4 (Version None)
Quarter: 2007Q2

REPORT INFORMATION
  Report Type: 
  Country: None (occurrence: None)
  Receive Date: 20070629
  Receipt Date: 20070621
  Transmission Date: 20071010
  Serious: Yes (Other)
  Sender: FDA-Public Use
  Company Number: -MERCK-0706HUN00012

PATIENT
  Age: 46 Year
  Sex: Female
  Weight: 60 kg

DRUGS (3)
  1. SINGULAIR [Suspect]
     Indication: ASTHMA
     Route: 048
     Dates: start: 20070612, end: 20070616
  2. DESLORATADINE [Concomitant]
     Indication: ASTHMA
     Route: 065
     Dates: start: 20070607
  3. LEVOCETIRIZINE HYDROCHLORIDE [Concomitant]
     Indication: ASTHMA
     Route: 065
     Dates: start: 20070607

REACTIONS (2)
  - ANGER [None]
  - HALLUCINATION [None]
